FAERS Safety Report 10613858 (Version 2)
Quarter: 2014Q4

REPORT INFORMATION
  Report Type: Spontaneous
  Country: HU (occurrence: HU)
  Receive Date: 20141128
  Receipt Date: 20141218
  Transmission Date: 20150529
  Serious: Yes (Other)
  Sender: FDA-Public Use
  Company Number: HU-PFIZER INC-2014324263

PATIENT
  Age: 72 Year
  Sex: Female

DRUGS (3)
  1. LECALPIN [Concomitant]
     Dosage: UNK, IN THE EVENING
  2. CARDURA XL [Suspect]
     Active Substance: DOXAZOSIN MESYLATE
     Dosage: 4 MG, 1X/DAY IN THE MORNING
  3. FLONTIN [Concomitant]

REACTIONS (2)
  - Musculoskeletal disorder [Unknown]
  - Blood pressure increased [Unknown]
